FAERS Safety Report 21322961 (Version 1)
Quarter: 2022Q3

REPORT INFORMATION
  Report Type: Spontaneous
  Country: US (occurrence: None)
  Receive Date: 20220909
  Receipt Date: 20220909
  Transmission Date: 20221027
  Serious: Yes (Hospitalization)
  Sender: FDA-Public Use
  Company Number: None

PATIENT
  Age: 58 Year
  Sex: Female
  Weight: 94.1 kg

DRUGS (4)
  1. ISATUXIMAB [Suspect]
     Active Substance: ISATUXIMAB
     Indication: Primary amyloidosis
     Dosage: FREQUENCY : EVERY OTHER WEEK;?
     Route: 041
     Dates: start: 20220330, end: 20220826
  2. BORTEZOMIB [Concomitant]
     Active Substance: BORTEZOMIB
     Dates: start: 20220330, end: 20220902
  3. CYCLOPHOSPHAMIDE [Concomitant]
     Active Substance: CYCLOPHOSPHAMIDE
     Dates: start: 20220729, end: 20220902
  4. DEXAMETHASONE [Concomitant]
     Active Substance: DEXAMETHASONE
     Dates: start: 20220330, end: 20220812

REACTIONS (9)
  - Fall [None]
  - Dizziness [None]
  - Gait disturbance [None]
  - Head injury [None]
  - Decreased appetite [None]
  - Bedridden [None]
  - Chest discomfort [None]
  - Palpitations [None]
  - Orthostatic hypotension [None]

NARRATIVE: CASE EVENT DATE: 20220907
